FAERS Safety Report 15210023 (Version 2)
Quarter: 2018Q3

REPORT INFORMATION
  Report Type: Report from Study
  Country: US (occurrence: US)
  Receive Date: 20180727
  Receipt Date: 20180907
  Transmission Date: 20181010
  Serious: Yes (Death)
  Sender: FDA-Public Use
  Company Number: US-ACTELION-A-NJ2016-145990

PATIENT
  Age: 82 Year
  Sex: Male
  Weight: 92.52 kg

DRUGS (6)
  1. UPTRAVI [Suspect]
     Active Substance: SELEXIPAG
     Dosage: 400 MCG, QPM
     Route: 048
  2. ADEMPAS [Concomitant]
     Active Substance: RIOCIGUAT
  3. UPTRAVI [Suspect]
     Active Substance: SELEXIPAG
     Indication: PULMONARY HYPERTENSION
     Dosage: 200 MCG, QAM
     Route: 048
     Dates: start: 20170108
  4. UPTRAVI [Suspect]
     Active Substance: SELEXIPAG
     Dosage: 200 MCG, BID
     Route: 048
     Dates: start: 20160926
  5. UPTRAVI [Suspect]
     Active Substance: SELEXIPAG
     Dosage: 200 MCG, QPM
     Route: 048
  6. COUMADIN [Concomitant]
     Active Substance: WARFARIN SODIUM

REACTIONS (11)
  - Hypotension [Unknown]
  - Diarrhoea [Unknown]
  - Drug dose omission [Unknown]
  - Pulmonary hypertension [Fatal]
  - Flushing [Unknown]
  - Disease complication [Fatal]
  - Abdominal discomfort [Unknown]
  - Colitis [Unknown]
  - Nausea [Unknown]
  - Disease progression [Unknown]
  - Dyspepsia [Unknown]

NARRATIVE: CASE EVENT DATE: 20161123
